FAERS Safety Report 17744561 (Version 1)
Quarter: 2020Q2

REPORT INFORMATION
  Report Type: Spontaneous
  Country: US (occurrence: US)
  Receive Date: 20200504
  Receipt Date: 20200504
  Transmission Date: 20200714
  Serious: Yes (Disabling)
  Sender: FDA-Public Use
  Company Number: None

PATIENT
  Age: 47 Year
  Sex: Female
  Weight: 56.25 kg

DRUGS (1)
  1. GADAVIST [Suspect]
     Active Substance: GADOBUTROL
     Indication: MAGNETIC RESONANCE IMAGING
     Route: 042
     Dates: start: 20200213, end: 20200213

REACTIONS (5)
  - Skin burning sensation [None]
  - Muscle twitching [None]
  - Paraesthesia [None]
  - Sensory disturbance [None]
  - Pruritus [None]

NARRATIVE: CASE EVENT DATE: 20200331
